FAERS Safety Report 24577990 (Version 1)
Quarter: 2024Q4

REPORT INFORMATION
  Report Type: Spontaneous
  Country: US (occurrence: US)
  Receive Date: 20241104
  Receipt Date: 20241104
  Transmission Date: 20250115
  Serious: Yes (Hospitalization)
  Sender: MERCK
  Company Number: US-PFIZER INC-PV202400130235

PATIENT
  Age: 64 Year
  Sex: Male

DRUGS (2)
  1. KEYTRUDA [Suspect]
     Active Substance: PEMBROLIZUMAB
     Indication: Squamous cell carcinoma of head and neck
     Dosage: 200 MILLIGRAM, 2Q3W
     Route: 042
     Dates: start: 20240825, end: 20240925
  2. SGN-PDL1V [Suspect]
     Active Substance: SGN-PDL1V
     Indication: Squamous cell carcinoma of head and neck
     Dosage: 1.5 MG/KG, 2Q3W
     Route: 042
     Dates: start: 20240828, end: 20240925

REACTIONS (2)
  - Pleural effusion [Recovered/Resolved]
  - Inappropriate schedule of product administration [Unknown]

NARRATIVE: CASE EVENT DATE: 20240828
